FAERS Safety Report 10037012 (Version 1)
Quarter: 2014Q1

REPORT INFORMATION
  Report Type: Spontaneous
  Country: US (occurrence: US)
  Receive Date: 20140326
  Receipt Date: 20140326
  Transmission Date: 20141002
  Serious: No
  Sender: FDA-Public Use
  Company Number: US-BIOGENIDEC-2014BI026510

PATIENT
  Sex: Female

DRUGS (19)
  1. TECFIDERA [Suspect]
     Indication: MULTIPLE SCLEROSIS
  2. AVONEX [Concomitant]
     Indication: MULTIPLE SCLEROSIS
     Route: 030
  3. AVONEX [Concomitant]
     Indication: MULTIPLE SCLEROSIS
     Route: 030
     Dates: start: 20130901
  4. AVONEX [Concomitant]
     Indication: MULTIPLE SCLEROSIS
     Route: 030
     Dates: start: 20090717, end: 20130813
  5. AVONEX [Concomitant]
     Indication: MULTIPLE SCLEROSIS
     Route: 030
  6. ATENOLOL [Concomitant]
  7. KLONOPIN [Concomitant]
     Route: 048
  8. FERROUS SULFATE (65 FE) [Concomitant]
     Route: 048
  9. PREDNISONE [Concomitant]
  10. PREDNISONE [Concomitant]
  11. PREDNISONE [Concomitant]
  12. PREDNISONE [Concomitant]
  13. PREDNISONE [Concomitant]
  14. PREDNISONE [Concomitant]
  15. MACROBID [Concomitant]
  16. DIFLUCAN [Concomitant]
  17. FLUCONAZOLE [Concomitant]
     Route: 048
  18. TYSABRI [Concomitant]
  19. NATALIZUMAB [Concomitant]
     Route: 042

REACTIONS (33)
  - Abdominal discomfort [Unknown]
  - Hypersensitivity [Unknown]
  - Gait disturbance [Unknown]
  - Visual impairment [Unknown]
  - Central nervous system lesion [Unknown]
  - Drug intolerance [Unknown]
  - Vertigo [Unknown]
  - Multiple sclerosis [Unknown]
  - Vision blurred [Unknown]
  - Dizziness [Unknown]
  - Sinus disorder [Unknown]
  - Pollakiuria [Unknown]
  - Arthralgia [Unknown]
  - Joint stiffness [Unknown]
  - Myalgia [Unknown]
  - Hypoaesthesia [Unknown]
  - Paraesthesia [Unknown]
  - Muscular weakness [Unknown]
  - Headache [Unknown]
  - Anaemia [Unknown]
  - Increased tendency to bruise [Unknown]
  - Haemorrhagic diathesis [Unknown]
  - Depression [Unknown]
  - Anxiety [Unknown]
  - Initial insomnia [Unknown]
  - Middle insomnia [Unknown]
  - General symptom [Unknown]
  - Decreased interest [Unknown]
  - Appetite disorder [Unknown]
  - Disturbance in attention [Unknown]
  - General physical health deterioration [Unknown]
  - Weight increased [Unknown]
  - Weight decreased [Unknown]
